FAERS Safety Report 4435979-5 (Version None)
Quarter: 2004Q3

REPORT INFORMATION
  Report Type: 
  Country: None (occurrence: None)
  Receive Date: 20040826
  Receipt Date: 20040812
  Transmission Date: 20050211
  Serious: Yes (Hospitalization)
  Sender: FDA-Public Use
  Company Number: 2004-BP-05131BP

PATIENT
  Sex: Female

DRUGS (13)
  1. CATAPRES-TTS-3 [Suspect]
     Indication: HYPERTENSION
     Dosage: 0.1 MG (2.5 MG,L PATCH Q WEEK) TO
     Route: 062
     Dates: start: 20040301
  2. AVAPRO [Concomitant]
  3. ATENOLOL [Concomitant]
  4. ZOCOR [Concomitant]
  5. DIAZEPAM [Concomitant]
  6. EVISTA [Concomitant]
  7. ECOTRIN              (RALOXIFENE HYDROCHLORIDE) [Concomitant]
  8. ... [Concomitant]
  9. MECLOZINE (MECLOZINE) [Concomitant]
  10. IMDUR [Concomitant]
  11. COLACE (DOCUSATE SODIUM) [Concomitant]
  12. NITROGLYCERIN SL [Concomitant]
  13. AVALIDE (KARVEA HCT) [Concomitant]

REACTIONS (2)
  - ANAEMIA [None]
  - HYPERTENSION [None]
